FAERS Safety Report 12474488 (Version 1)
Quarter: 2016Q2

REPORT INFORMATION
  Report Type: Spontaneous
  Country: US (occurrence: US)
  Receive Date: 20160617
  Receipt Date: 20160617
  Transmission Date: 20160815
  Serious: Yes (Hospitalization)
  Sender: FDA-Public Use
  Company Number: US-ELI_LILLY_AND_COMPANY-US201606004456

PATIENT
  Sex: Female

DRUGS (2)
  1. HUMALOG [Suspect]
     Active Substance: INSULIN LISPRO
     Indication: CYSTIC FIBROSIS RELATED DIABETES
     Dosage: 30 U, PRN
     Route: 065
     Dates: start: 2010
  2. HUMALOG [Suspect]
     Active Substance: INSULIN LISPRO
     Dosage: 30 U, PRN
     Route: 065
     Dates: start: 2010

REACTIONS (3)
  - Cystic fibrosis [Unknown]
  - Hyperglycaemia [Unknown]
  - Incorrect product storage [Unknown]
